FAERS Safety Report 18208409 (Version 2)
Quarter: 2021Q2

REPORT INFORMATION
  Report Type: Report from Study
  Country: US (occurrence: US)
  Receive Date: 20200828
  Receipt Date: 20210507
  Transmission Date: 20210717
  Serious: Yes (Other)
  Sender: FDA-Public Use
  Company Number: US-PFIZER INC-2020331720

PATIENT
  Age: 49 Year
  Sex: Male

DRUGS (1)
  1. FENTANYL CITRATE. [Suspect]
     Active Substance: FENTANYL CITRATE
     Dosage: UNK

REACTIONS (6)
  - Nervousness [Unknown]
  - Glassy eyes [Unknown]
  - Tremor [Unknown]
  - Miosis [Unknown]
  - Balance disorder [Unknown]
  - Toxicity to various agents [Unknown]
